FAERS Safety Report 8815873 (Version 2)
Quarter: 2013Q1

REPORT INFORMATION
  Report Type: Spontaneous
  Country: CA (occurrence: CA)
  Receive Date: 20120928
  Receipt Date: 20130315
  Transmission Date: 20140127
  Serious: Yes (Hospitalization)
  Sender: FDA-Public Use
  Company Number: CA-ROCHE-1138840

PATIENT
  Sex: Male

DRUGS (2)
  1. XOLAIR [Suspect]
     Indication: ASTHMA
     Route: 058
     Dates: start: 20101110
  2. XOLAIR [Suspect]
     Route: 065
     Dates: start: 20130312

REACTIONS (3)
  - Fibrosis [Unknown]
  - Nasopharyngitis [Unknown]
  - Heart rate increased [Unknown]
